FAERS Safety Report 8713213 (Version 2)
Quarter: 2012Q4

REPORT INFORMATION
  Report Type: 
  Country: US (occurrence: US)
  Receive Date: 20120808
  Receipt Date: 20120831
  Transmission Date: 20130627
  Serious: Yes (Death, Other)
  Sender: FDA-Public Use
  Company Number: US-GILEAD-2012-0058779

PATIENT
  Sex: Female

DRUGS (5)
  1. LETAIRIS [Suspect]
     Indication: PULMONARY HYPERTENSION
     Dosage: 5 mg, UNK
     Route: 048
     Dates: start: 20120206
  2. LETAIRIS [Suspect]
     Indication: SCLERODERMA
  3. LETAIRIS [Suspect]
     Indication: GASTROINTESTINAL ARTERIOVENOUS MALFORMATION
  4. LETAIRIS [Suspect]
     Indication: ANAEMIA
  5. LETAIRIS [Suspect]
     Indication: UPPER GASTROINTESTINAL HAEMORRHAGE

REACTIONS (4)
  - Death [Fatal]
  - Red blood cell count decreased [Unknown]
  - Nervous system disorder [Unknown]
  - Oxygen saturation decreased [Unknown]
